FAERS Safety Report 9256926 (Version 1)
Quarter: 2013Q2

REPORT INFORMATION
  Report Type: Spontaneous
  Country: GB (occurrence: None)
  Receive Date: 20130423
  Receipt Date: 20130423
  Transmission Date: 20140414
  Serious: Yes (Hospitalization)
  Sender: FDA-Public Use
  Company Number: E2B_00000747

PATIENT
  Age: 71 Year
  Sex: Female
  Weight: 67.6 kg

DRUGS (7)
  1. LISINOPRIL [Suspect]
     Indication: HYPERTENSION
     Route: 048
     Dates: start: 20060908, end: 20130206
  2. ATENOLOL (UNKNOWN) [Suspect]
     Indication: HYPERTENSION
     Route: 048
     Dates: start: 20011016
  3. SUNITINIB MALATE (UNKNOWN) [Concomitant]
     Route: 048
     Dates: start: 20130115, end: 20130205
  4. SIMVASTATIN (SIMVASTATIN) [Concomitant]
  5. LANSOPRAZOLE [Concomitant]
  6. CARMELLLOSE (CAEMELLOSE) [Concomitant]
  7. CODEINE PHOSPHATE + PARACETAMOL (CO-CODAMOL) (CODEINE PHOSPHATE, PARACETAMOL) [Concomitant]

REACTIONS (2)
  - Right ventricular failure [None]
  - Pulmonary hypertension [None]
